FAERS Safety Report 7818377-3 (Version None)
Quarter: 2011Q4

REPORT INFORMATION
  Report Type: 
  Country: None (occurrence: None)
  Receive Date: 20111017
  Receipt Date: 20111011
  Transmission Date: 20120403
  Serious: Yes (Life-Threatening)
  Sender: FDA-Public Use
  Company Number: JP-ASTRAZENECA-2011SE61855

PATIENT
  Age: 52 Year
  Sex: Male

DRUGS (2)
  1. 4 OTHER DRUGS [Suspect]
     Route: 065
  2. CRESTOR [Suspect]
     Dosage: 2.5 MG X 23 TABLETS
     Route: 048

REACTIONS (2)
  - INTENTIONAL OVERDOSE [None]
  - SUICIDE ATTEMPT [None]
